FAERS Safety Report 5742560-4 (Version None)
Quarter: 2008Q2

REPORT INFORMATION
  Report Type: 
  Country: None (occurrence: None)
  Receive Date: 20080515
  Receipt Date: 20080515
  Transmission Date: 20081010
  Serious: Yes (Hospitalization, Other)
  Sender: FDA-Public Use
  Company Number: None

PATIENT
  Age: 78 Year
  Sex: Female
  Weight: 77.1115 kg

DRUGS (2)
  1. RECLAST [Suspect]
     Indication: OSTEOPOROSIS
     Dosage: 1 YEARLY INFUSION
     Dates: start: 20080324
  2. RECLAST [Suspect]
     Indication: PROPHYLAXIS
     Dosage: 1 YEARLY INFUSION
     Dates: start: 20080324

REACTIONS (3)
  - CHILLS [None]
  - DISORIENTATION [None]
  - FALL [None]
